FAERS Safety Report 8961306 (Version 3)
Quarter: 2013Q1

REPORT INFORMATION
  Report Type: Spontaneous
  Country: US (occurrence: US)
  Receive Date: 20121213
  Receipt Date: 20130318
  Transmission Date: 20140127
  Serious: Yes (Hospitalization)
  Sender: FDA-Public Use
  Company Number: US-JNJFOC-20121202108

PATIENT
  Age: 49 Year
  Sex: Female
  Weight: 59 kg

DRUGS (8)
  1. RIVAROXABAN [Suspect]
     Indication: THROMBOSIS PROPHYLAXIS
     Route: 048
     Dates: start: 20120831, end: 20120911
  2. RIVAROXABAN [Suspect]
     Indication: ORTHOPAEDIC PROCEDURE
     Route: 048
     Dates: start: 20120831, end: 20120911
  3. MULTIPLE VITAMIN [Concomitant]
     Indication: MEDICAL DIET
     Route: 065
  4. HYDROCODONE APAP [Concomitant]
     Indication: PAIN
     Dosage: 1-2 TABLETS (10-325) AS NEEDED
     Route: 065
  5. CALCIUM [Concomitant]
     Indication: MEDICAL DIET
     Route: 065
  6. GLUCOSAMINE / CHONDROITIN [Concomitant]
     Indication: MEDICAL DIET
     Dosage: 500-400
     Route: 065
     Dates: start: 20120905
  7. CALCIUM CARBONATE [Concomitant]
     Route: 065
     Dates: start: 20120905
  8. NORCO [Concomitant]
     Indication: PAIN
     Dosage: 1 OR 2 DOSES AS NECESSARY
     Route: 065
     Dates: start: 20120901

REACTIONS (1)
  - Deep vein thrombosis [Recovered/Resolved]
